FAERS Safety Report 25468972 (Version 1)
Quarter: 2025Q2

REPORT INFORMATION
  Report Type: Spontaneous
  Country: PE (occurrence: PE)
  Receive Date: 20250623
  Receipt Date: 20250623
  Transmission Date: 20250717
  Serious: Yes (Hospitalization, Disabling, Other)
  Sender: ROCHE
  Company Number: PE-ROCHE-10000319388

PATIENT

DRUGS (2)
  1. AVASTIN [Suspect]
     Active Substance: BEVACIZUMAB
     Indication: Product used for unknown indication
     Route: 050
     Dates: end: 201710
  2. AVASTIN [Suspect]
     Active Substance: BEVACIZUMAB
     Route: 031

REACTIONS (6)
  - Blindness [Recovering/Resolving]
  - Swelling [Unknown]
  - Pain [Unknown]
  - Off label use [Unknown]
  - Intentional product use issue [Unknown]
  - Eye infection [Unknown]
